FAERS Safety Report 4702903-7 (Version None)
Quarter: 2005Q2

REPORT INFORMATION
  Report Type: 
  Country: None (occurrence: None)
  Receive Date: 20050629
  Receipt Date: 20050623
  Transmission Date: 20051028
  Serious: Yes (Life-Threatening, Hospitalization)
  Sender: FDA-Public Use
  Company Number: US-JNJFOC-20050104149

PATIENT
  Sex: Male
  Weight: 13 kg

DRUGS (7)
  1. CHILDREN'S TYLENOL [Suspect]
  2. CHILDREN'S TYLENOL [Suspect]
     Dosage: NO MORE THAN TWICE DAILY, INTERMITTENTLY FOR 3 TO 4 WKS THEN 2 DOSES DAILY FOR APPROXIMATELY 1 WEEK
  3. NYQUIL [Suspect]
  4. NYQUIL [Suspect]
  5. NYQUIL [Suspect]
  6. NYQUIL [Suspect]
  7. NYQUIL [Suspect]

REACTIONS (3)
  - DRUG TOXICITY [None]
  - HEPATIC ENCEPHALOPATHY [None]
  - HEPATIC FAILURE [None]
